FAERS Safety Report 21168597 (Version 5)
Quarter: 2023Q4

REPORT INFORMATION
  Report Type: Report from Study
  Country: US (occurrence: US)
  Receive Date: 20220803
  Receipt Date: 20231208
  Transmission Date: 20240110
  Serious: Yes (Other)
  Sender: FDA-Public Use
  Company Number: US-002147023-NVSC2022US171977

PATIENT
  Sex: Female

DRUGS (1)
  1. KESIMPTA [Suspect]
     Active Substance: OFATUMUMAB
     Indication: Multiple sclerosis
     Dosage: 20 MG, QW
     Route: 058

REACTIONS (14)
  - Multiple sclerosis [Unknown]
  - Condition aggravated [Unknown]
  - Feeling abnormal [Unknown]
  - Hypoaesthesia [Not Recovered/Not Resolved]
  - Paraesthesia [Recovered/Resolved]
  - Paraesthesia [Not Recovered/Not Resolved]
  - Attention deficit hyperactivity disorder [Unknown]
  - Depression [Unknown]
  - Anxiety [Unknown]
  - Decreased immune responsiveness [Unknown]
  - Dental caries [Unknown]
  - Tooth infection [Unknown]
  - Malaise [Unknown]
  - Muscle strain [Unknown]
